FAERS Safety Report 17280125 (Version 2)
Quarter: 2020Q1

REPORT INFORMATION
  Report Type: Spontaneous
  Country: ES (occurrence: ES)
  Receive Date: 20200117
  Receipt Date: 20200227
  Transmission Date: 20200409
  Serious: Yes (Hospitalization, Other)
  Sender: FDA-Public Use
  Company Number: NVSC2020ES008238

PATIENT
  Age: 60 Year
  Sex: Female

DRUGS (1)
  1. VOTRIENT [Suspect]
     Active Substance: PAZOPANIB HYDROCHLORIDE
     Indication: RENAL CELL CARCINOMA
     Dosage: 80 MG, QD
     Route: 065
     Dates: start: 201506, end: 201507

REACTIONS (4)
  - Hepatic enzyme increased [Recovered/Resolved]
  - Rash [Unknown]
  - Abdominal pain [Unknown]
  - Angioedema [Unknown]

NARRATIVE: CASE EVENT DATE: 201507
